FAERS Safety Report 7835577 (Version 5)
Quarter: 2012Q4

REPORT INFORMATION
  Report Type: 
  Country: BR (occurrence: BR)
  Receive Date: 20110301
  Receipt Date: 20121231
  Transmission Date: 20130627
  Serious: Yes (Other)
  Sender: FDA-Public Use
  Company Number: BR-AMGEN-BRASP2011010553

PATIENT
  Age: 46 Year
  Sex: Male
  Weight: 95 kg

DRUGS (4)
  1. ENBREL [Suspect]
     Indication: PSORIATIC ARTHROPATHY
     Dosage: 50 mg, weekly
     Route: 058
     Dates: start: 201001
  2. ENBREL [Suspect]
     Dosage: 50 mg, qwk
     Route: 058
     Dates: start: 201111
  3. METHOTREXATE [Concomitant]
     Dosage: 7.5 mg/weekly
  4. FOLIC ACID [Concomitant]
     Dosage: UNK
     Dates: end: 20110207

REACTIONS (9)
  - Psoriatic arthropathy [Unknown]
  - Foot deformity [Unknown]
  - Joint swelling [Recovering/Resolving]
  - Movement disorder [Unknown]
  - Arthropathy [Recovering/Resolving]
  - Cough [Unknown]
  - Pyrexia [Unknown]
  - Influenza [Unknown]
  - Viral infection [Recovered/Resolved]
